FAERS Safety Report 25150776 (Version 1)
Quarter: 2025Q2

REPORT INFORMATION
  Report Type: Spontaneous
  Country: US (occurrence: None)
  Receive Date: 20250402
  Receipt Date: 20250402
  Transmission Date: 20250717
  Serious: Yes (Disabling, Other)
  Sender: FDA-CTU
  Company Number: None

PATIENT
  Age: 38 Year
  Sex: Female
  Weight: 49.44 kg

DRUGS (19)
  1. SODIUM CHLORIDE [Suspect]
     Active Substance: SODIUM CHLORIDE
  2. TYLENOL EXTRA STRENGTH [Suspect]
     Active Substance: ACETAMINOPHEN
  3. DECADRON [Suspect]
     Active Substance: DEXAMETHASONE
  4. REGLAN [Suspect]
     Active Substance: METOCLOPRAMIDE HYDROCHLORIDE
  5. BENADRYL [Suspect]
     Active Substance: DIPHENHYDRAMINE HYDROCHLORIDE
  6. TIZANIDINE [Concomitant]
     Active Substance: TIZANIDINE
  7. JOURNAVX [Concomitant]
     Active Substance: SUZETRIGINE
  8. HYDROXYZINE [Concomitant]
     Active Substance: HYDROXYZINE HYDROCHLORIDE
  9. XANAX [Concomitant]
     Active Substance: ALPRAZOLAM
  10. Dry Eye drops [Concomitant]
  11. UNSPECIFIED INGREDIENT [Concomitant]
     Active Substance: UNSPECIFIED INGREDIENT
  12. Topical steroid [Concomitant]
  13. IMURAN [Concomitant]
     Active Substance: AZATHIOPRINE
  14. VITAMIN D NOS [Concomitant]
     Active Substance: CHOLECALCIFEROL\ERGOCALCIFEROL
  15. VITAMIN E [Concomitant]
     Active Substance: .ALPHA.-TOCOPHEROL
  16. DIETARY SUPPLEMENT\RESVERATROL [Concomitant]
     Active Substance: DIETARY SUPPLEMENT\RESVERATROL
  17. FISH OIL [Concomitant]
     Active Substance: FISH OIL
  18. MAGNESIUM [Concomitant]
     Active Substance: MAGNESIUM
  19. Chinese herbal remedies for pain [Concomitant]

REACTIONS (11)
  - Device infusion issue [None]
  - Device connection issue [None]
  - Infusion site extravasation [None]
  - Pain [None]
  - Pruritus [None]
  - Pain [None]
  - Burning sensation [None]
  - Blister [None]
  - Sensory disturbance [None]
  - Skin atrophy [None]
  - Connective tissue disorder [None]

NARRATIVE: CASE EVENT DATE: 20240705
